FAERS Safety Report 19381036 (Version 1)
Quarter: 2021Q2

REPORT INFORMATION
  Report Type: Spontaneous
  Country: US (occurrence: US)
  Receive Date: 20210607
  Receipt Date: 20210607
  Transmission Date: 20210717
  Serious: No
  Sender: FDA-Public Use
  Company Number: US-AUROBINDO-AUR-APL-2020-040418

PATIENT
  Age: 72 Year
  Sex: Female

DRUGS (6)
  1. EFFEXOR [Concomitant]
     Active Substance: VENLAFAXINE HYDROCHLORIDE
     Indication: DEPRESSION
     Dosage: UNK
     Route: 065
  2. EFFEXOR [Concomitant]
     Active Substance: VENLAFAXINE HYDROCHLORIDE
     Dosage: UNK
     Route: 065
     Dates: start: 202006
  3. EFFEXOR [Concomitant]
     Active Substance: VENLAFAXINE HYDROCHLORIDE
     Indication: ANXIETY
     Dosage: 75 MILLIGRAM, ONCE A DAY
     Route: 048
  4. VENLAFAXINE HYDROCHLORIDE EXTENDED?RELEASE CAPSULES 75MG [Suspect]
     Active Substance: VENLAFAXINE HYDROCHLORIDE
     Indication: ANXIETY
     Dosage: 75 MILLIGRAM, ONCE A DAY
     Route: 048
  5. VENLAFAXINE HYDROCHLORIDE EXTENDED?RELEASE CAPSULES 75MG [Suspect]
     Active Substance: VENLAFAXINE HYDROCHLORIDE
     Indication: DEPRESSION
  6. CLARINEX [Concomitant]
     Active Substance: DESLORATADINE
     Indication: PRODUCT USED FOR UNKNOWN INDICATION
     Dosage: UNK
     Route: 065

REACTIONS (4)
  - Product substitution issue [Unknown]
  - Panic attack [Recovering/Resolving]
  - Malaise [Recovering/Resolving]
  - Drug ineffective [Unknown]
